FAERS Safety Report 11036887 (Version 3)
Quarter: 2015Q3

REPORT INFORMATION
  Report Type: Spontaneous
  Country: AT (occurrence: None)
  Receive Date: 20150414
  Receipt Date: 20150706
  Transmission Date: 20151125
  Serious: Yes (Hospitalization)
  Sender: FDA-Public Use
  Company Number: 2015DEPAT00647

PATIENT
  Age: 12 Year
  Sex: Male
  Weight: 46.4 kg

DRUGS (7)
  1. ETOPOSIDE. [Concomitant]
     Active Substance: ETOPOSIDE
  2. THALIDOMIDE [Concomitant]
     Active Substance: THALIDOMIDE
  3. THYREX (LEVOTHYROXINE SODIUM) [Concomitant]
  4. CELECOXIB. [Concomitant]
     Active Substance: CELECOXIB
  5. FENOFIBRATE. [Concomitant]
     Active Substance: FENOFIBRATE
  6. DEPOCYT(E) (CYTARABINE) LIPOSOME INJECTABLE SUSPENSION [Suspect]
     Active Substance: CYTARABINE
     Indication: MEDULLOBLASTOMA
     Dosage: 35 MG EVERY 4 WEEKS, OTHER
     Route: 018
     Dates: start: 20141030, end: 20150319
  7. LIDAPRIM (SULFAMETROLE, TRIMETHOPRIM) [Concomitant]

REACTIONS (2)
  - Diplopia [None]
  - Papilloedema [None]

NARRATIVE: CASE EVENT DATE: 20150330
